FAERS Safety Report 5337973-9 (Version None)
Quarter: 2007Q2

REPORT INFORMATION
  Report Type: 
  Country: None (occurrence: None)
  Receive Date: 20070530
  Receipt Date: 20070521
  Transmission Date: 20071010
  Serious: Yes (Hospitalization)
  Sender: FDA-Public Use
  Company Number: PHEH2007US07677

PATIENT
  Age: 86 Year
  Sex: Female

DRUGS (2)
  1. ZELNORM [Suspect]
     Route: 065
     Dates: start: 20070101, end: 20070401
  2. ANALGESICS [Concomitant]

REACTIONS (2)
  - CHEST PAIN [None]
  - MYOCARDIAL INFARCTION [None]
